FAERS Safety Report 7069755-4 (Version None)
Quarter: 2010Q4

REPORT INFORMATION
  Report Type: 
  Country: None (occurrence: None)
  Receive Date: 20101028
  Receipt Date: 20100519
  Transmission Date: 20110411
  Serious: No
  Sender: FDA-Public Use
  Company Number: US-WYE-H15335410

PATIENT
  Age: 71 Year
  Sex: Female
  Weight: 59.02 kg

DRUGS (2)
  1. ADVIL [Suspect]
     Indication: GINGIVITIS
     Dosage: 1-3 TABLETS DAILY
     Route: 048
     Dates: start: 20100516
  2. MULTI-VITAMINS [Concomitant]

REACTIONS (1)
  - DYSPNOEA [None]
